FAERS Safety Report 11522215 (Version 1)
Quarter: 2015Q3

REPORT INFORMATION
  Report Type: Spontaneous
  Country: US (occurrence: US)
  Receive Date: 20150918
  Receipt Date: 20150918
  Transmission Date: 20151125
  Serious: Yes (Other)
  Sender: FDA-Public Use
  Company Number: US-ROCHE-750924

PATIENT
  Sex: Female

DRUGS (3)
  1. RIBAVIRIN. [Suspect]
     Active Substance: RIBAVIRIN
     Indication: HEPATITIS C
     Route: 065
  2. RIBAVIRIN. [Suspect]
     Active Substance: RIBAVIRIN
     Dosage: DOSE REDUCED DUE TO LEUKOPENIC AND HEMATOCRIT OF 26
     Route: 065
  3. PEGASYS [Suspect]
     Active Substance: PEGINTERFERON ALFA-2A
     Indication: HEPATITIS C
     Route: 065

REACTIONS (9)
  - Stomatitis [Unknown]
  - Weight decreased [Unknown]
  - Decreased appetite [Unknown]
  - Haematocrit [Not Recovered/Not Resolved]
  - Musculoskeletal pain [Unknown]
  - Neuropathy peripheral [Unknown]
  - Asthenia [Unknown]
  - Fibromyalgia [Unknown]
  - Leukopenia [Not Recovered/Not Resolved]
